FAERS Safety Report 15554075 (Version 3)
Quarter: 2019Q3

REPORT INFORMATION
  Report Type: Report from Study
  Country: None (occurrence: IT)
  Receive Date: 20181026
  Receipt Date: 20190719
  Transmission Date: 20191004
  Serious: Yes (Other)
  Sender: FDA-Public Use
  Company Number: IT-ABBVIE-18S-083-2529489-00

PATIENT
  Age: 83 Year
  Sex: Male

DRUGS (2)
  1. DUODOPA [Suspect]
     Active Substance: CARBIDOPA\LEVODOPA
     Dosage: MD 5+3, CR 3.4, ED 4
     Route: 050
  2. DUODOPA [Suspect]
     Active Substance: CARBIDOPA\LEVODOPA
     Indication: PARKINSON^S DISEASE
     Dosage: MD 5+3, CR 3.4, ED 4
     Route: 050
     Dates: start: 20141020

REACTIONS (6)
  - Candida infection [Unknown]
  - Stoma site hypergranulation [Unknown]
  - Medical device site swelling [Not Recovered/Not Resolved]
  - Stoma site oedema [Recovered/Resolved]
  - Stoma site discharge [Unknown]
  - Stoma site erythema [Recovered/Resolved]

NARRATIVE: CASE EVENT DATE: 201810
